FAERS Safety Report 22293950 (Version 1)
Quarter: 2023Q2

REPORT INFORMATION
  Report Type: Spontaneous
  Country: US (occurrence: US)
  Receive Date: 20230508
  Receipt Date: 20230508
  Transmission Date: 20230722
  Serious: Yes (Other)
  Sender: FDA-Public Use
  Company Number: US-SUN PHARMACEUTICAL INDUSTRIES LTD-2023R1-384330

PATIENT
  Age: 27 Year
  Sex: Female

DRUGS (2)
  1. PREDNISONE [Suspect]
     Active Substance: PREDNISONE
     Indication: Plasma cell mastitis
     Dosage: 10 MILLIGRAM, DAILY
     Route: 065
  2. AZATHIOPRINE [Suspect]
     Active Substance: AZATHIOPRINE
     Indication: Plasma cell mastitis
     Dosage: 50 MILLIGRAM, DAILY
     Route: 065

REACTIONS (4)
  - Condition aggravated [Unknown]
  - Exposure during pregnancy [Unknown]
  - Maternal exposure during breast feeding [Unknown]
  - Live birth [Unknown]
